FAERS Safety Report 4980470-0 (Version None)
Quarter: 2006Q2

REPORT INFORMATION
  Report Type: 
  Country: None (occurrence: None)
  Receive Date: 20060418
  Receipt Date: 20060405
  Transmission Date: 20061013
  Serious: Yes (Hospitalization, Other)
  Sender: FDA-Public Use
  Company Number: 2006031604

PATIENT
  Sex: Male

DRUGS (11)
  1. NEURONTIN [Suspect]
     Indication: ILL-DEFINED DISORDER
  2. HALCION [Suspect]
     Indication: ILL-DEFINED DISORDER
  3. OXYCONTIN [Suspect]
     Indication: PAIN
  4. DILAUDID [Suspect]
     Indication: PAIN
  5. PAXIL [Concomitant]
  6. RELAFEN [Concomitant]
  7. MEXILETINE HCL [Concomitant]
  8. CAPTOPRIL [Concomitant]
  9. HUMULIN 70/30 [Concomitant]
  10. PHENERGAN (PROMETHAZINE HYDROCHLORIDE) [Concomitant]
  11. REGLAN [Concomitant]

REACTIONS (10)
  - ABNORMAL BEHAVIOUR [None]
  - BLOOD GLUCOSE INCREASED [None]
  - DEPRESSED LEVEL OF CONSCIOUSNESS [None]
  - DRUG EFFECT DECREASED [None]
  - DYSARTHRIA [None]
  - INCONTINENCE [None]
  - LOSS OF CONSCIOUSNESS [None]
  - OVERDOSE [None]
  - SUICIDAL IDEATION [None]
  - TREATMENT NONCOMPLIANCE [None]
